FAERS Safety Report 18216132 (Version 6)
Quarter: 2020Q4

REPORT INFORMATION
  Report Type: Spontaneous
  Country: US (occurrence: US)
  Receive Date: 20200901
  Receipt Date: 20201210
  Transmission Date: 20210113
  Serious: No
  Sender: FDA-Public Use
  Company Number: US-HTU-2020US020981

PATIENT
  Sex: Male

DRUGS (1)
  1. VALCHLOR [Suspect]
     Active Substance: MECHLORETHAMINE
     Indication: CUTANEOUS T-CELL LYMPHOMA
     Dosage: THIN FILM, 1/WEEK
     Route: 061
     Dates: start: 2020, end: 20200911

REACTIONS (8)
  - Application site exfoliation [Not Recovered/Not Resolved]
  - Application site dermatitis [Unknown]
  - Product container issue [Unknown]
  - Intentional product use issue [Not Recovered/Not Resolved]
  - Application site rash [Not Recovered/Not Resolved]
  - Application site pruritus [Recovered/Resolved]
  - Application site pain [Unknown]
  - Application site inflammation [Unknown]

NARRATIVE: CASE EVENT DATE: 2020
